FAERS Safety Report 5511780-6 (Version None)
Quarter: 2007Q4

REPORT INFORMATION
  Report Type: 
  Country: None (occurrence: None)
  Receive Date: 20071030
  Receipt Date: 20070319
  Transmission Date: 20080405
  Serious: Yes (Other)
  Sender: FDA-Public Use
  Company Number: HQWYE102809AUG04

PATIENT
  Age: 57 Year
  Sex: Female
  Weight: 89.89 kg

DRUGS (2)
  1. PREMARIN [Suspect]
  2. PROVERA [Suspect]

REACTIONS (1)
  - BREAST CANCER [None]
